FAERS Safety Report 6303681-0 (Version None)
Quarter: 2009Q3

REPORT INFORMATION
  Report Type: 
  Country: None (occurrence: None)
  Receive Date: 20090807
  Receipt Date: 20090807
  Transmission Date: 20100115
  Serious: Yes (Life-Threatening)
  Sender: FDA-Public Use
  Company Number: None

PATIENT
  Age: 32 Year
  Sex: Female

DRUGS (3)
  1. CLINDAMYCIN 150MG [Suspect]
     Indication: STAPHYLOCOCCAL ABSCESS
     Dosage: 450MG Q8H PO
     Route: 048
     Dates: start: 20090521, end: 20090601
  2. MUPIROCIN [Concomitant]
  3. OXYCODONE HCL AND ACETAMINOPHEN [Concomitant]

REACTIONS (7)
  - BONE PAIN [None]
  - HAEMATOCRIT DECREASED [None]
  - HAEMOGLOBIN DECREASED [None]
  - LEUKOPENIA [None]
  - LUPUS-LIKE SYNDROME [None]
  - MYALGIA [None]
  - THYROXINE FREE DECREASED [None]
